FAERS Safety Report 4512590-9 (Version None)
Quarter: 2004Q4

REPORT INFORMATION
  Report Type: 
  Country: None (occurrence: None)
  Receive Date: 20041124
  Receipt Date: 20041105
  Transmission Date: 20050328
  Serious: Yes (Hospitalization, Other)
  Sender: FDA-Public Use
  Company Number: USA041183350

PATIENT
  Age: 45 Year
  Sex: Male
  Weight: 77 kg

DRUGS (4)
  1. FORTEO [Suspect]
     Indication: OSTEOPOROSIS
     Dates: start: 20040701
  2. AVONEX [Concomitant]
  3. ACIPHEX [Concomitant]
  4. HYDROCODONE [Concomitant]

REACTIONS (6)
  - DYSPNOEA [None]
  - FEELING ABNORMAL [None]
  - LACRIMATION INCREASED [None]
  - PETIT MAL EPILEPSY [None]
  - RHINORRHOEA [None]
  - SPEECH DISORDER [None]
